FAERS Safety Report 5191123-0 (Version None)
Quarter: 2006Q4

REPORT INFORMATION
  Report Type: 
  Country: None (occurrence: None)
  Receive Date: 20061226
  Receipt Date: 20040128
  Transmission Date: 20070319
  Serious: Yes (Other)
  Sender: FDA-Public Use
  Company Number: PHBS2004BR01490

PATIENT
  Sex: Female
  Weight: 75 kg

DRUGS (10)
  1. CHLORDIAZEPOXIDE HCL [Concomitant]
     Indication: SLEEP DISORDER
     Dosage: 25 MG, QD
  2. CHLORDIAZEPOXIDE HCL [Concomitant]
     Dosage: 25 MG, QD
  3. LIVIAL [Concomitant]
     Indication: HORMONE REPLACEMENT THERAPY
  4. LORAX [Concomitant]
     Indication: SLEEP DISORDER THERAPY
     Dosage: 2 MG, 2 TABLETS DAILY
     Route: 048
  5. OMEGA-3 [Concomitant]
     Indication: BLOOD CHOLESTEROL INCREASED
  6. TRILEPTAL [Suspect]
     Indication: DEPRESSION
     Dosage: 900 MG/D
     Route: 048
  7. TRILEPTAL [Suspect]
     Dosage: 600 MG, DAILY
     Route: 048
     Dates: start: 20030101
  8. TRILEPTAL [Suspect]
     Dosage: 0.25 TO 0.5 TAB/DAY
     Route: 048
  9. RIVOTRIL [Concomitant]
  10. LITHIUM CARBONATE [Concomitant]

REACTIONS (22)
  - ACNE [None]
  - AGITATION [None]
  - ALOPECIA [None]
  - ANGER [None]
  - ASTHENIA [None]
  - BALANCE DISORDER [None]
  - BODY HEIGHT DECREASED [None]
  - CONSTIPATION [None]
  - DISTURBANCE IN ATTENTION [None]
  - DRY MOUTH [None]
  - FALL [None]
  - FATIGUE [None]
  - INCREASED APPETITE [None]
  - PRURITUS [None]
  - RASH [None]
  - ROTATOR CUFF REPAIR [None]
  - ROTATOR CUFF SYNDROME [None]
  - SKIN EXFOLIATION [None]
  - SOMNOLENCE [None]
  - TENDONITIS [None]
  - VISION BLURRED [None]
  - WEIGHT INCREASED [None]
